FAERS Safety Report 19667062 (Version 1)
Quarter: 2021Q3

REPORT INFORMATION
  Report Type: Spontaneous
  Country: CN (occurrence: CN)
  Receive Date: 20210806
  Receipt Date: 20210806
  Transmission Date: 20211014
  Serious: Yes (Hospitalization)
  Sender: FDA-Public Use
  Company Number: CN-BAXTER-2021BAX023455

PATIENT
  Age: 9 Year
  Sex: Male
  Weight: 27 kg

DRUGS (22)
  1. HOLOXAN [Suspect]
     Active Substance: IFOSFAMIDE
     Dosage: DOSE RE?INTRODUCED: HOLOXAN + NS
     Route: 041
     Dates: start: 202107
  2. METHOTREXATE. [Suspect]
     Active Substance: METHOTREXATE
     Indication: ANAPLASTIC LARGE-CELL LYMPHOMA
     Dosage: METHOTREXATE 5.31 G + 5% GS 250 ML
     Route: 041
     Dates: start: 20210628, end: 20210628
  3. METHOTREXATE. [Suspect]
     Active Substance: METHOTREXATE
     Dosage: DOSE RE?INTRODUCED: METHOTREXATE + 5% GS
     Route: 041
  4. 0.9% SODIUM CHLORIDE INJECTION [Suspect]
     Active Substance: SODIUM CHLORIDE
     Dosage: ETOPOSIDE 106 MG + NS 500 ML
     Route: 041
     Dates: start: 20210701, end: 20210702
  5. VINCRISTINE SULFATE. [Suspect]
     Active Substance: VINCRISTINE SULFATE
     Dosage: DOSE RE?INTRODUCED: VINCRISTINE SULFATE + NS
     Route: 041
  6. ETOPOSIDE. [Suspect]
     Active Substance: ETOPOSIDE
     Dosage: DOSE RE?INTRODUCED: ETOPOSIDE + NS
     Route: 041
     Dates: start: 202107
  7. 0.9% SODIUM CHLORIDE INJECTION [Suspect]
     Active Substance: SODIUM CHLORIDE
     Indication: MEDICATION DILUTION
     Dosage: HOLOXAN 0.85G + NS 100 ML
     Route: 041
     Dates: start: 20210628, end: 20210702
  8. 0.9% SODIUM CHLORIDE INJECTION [Suspect]
     Active Substance: SODIUM CHLORIDE
     Dosage: DOSE RE?INTRODUCED: HOLOXAN + NS
     Route: 041
     Dates: start: 202107
  9. HOLOXAN [Suspect]
     Active Substance: IFOSFAMIDE
     Indication: ANAPLASTIC LARGE-CELL LYMPHOMA
     Dosage: HOLOXAN 0.85G + NS 100 ML
     Route: 041
     Dates: start: 20210628, end: 20210702
  10. 0.9% SODIUM CHLORIDE INJECTION [Suspect]
     Active Substance: SODIUM CHLORIDE
     Dosage: DOSE RE?INTRODUCED: ETOPOSIDE + NS
     Route: 041
     Dates: start: 202107
  11. 5% GLUCOSE  INJECTION [Suspect]
     Active Substance: DEXTROSE
     Dosage: DOSE RE?INTRODUCED: METHOTREXATE + 5% GS
     Route: 041
  12. ETOPOSIDE. [Suspect]
     Active Substance: ETOPOSIDE
     Indication: ANAPLASTIC LARGE-CELL LYMPHOMA
     Route: 065
  13. ETOPOSIDE. [Suspect]
     Active Substance: ETOPOSIDE
     Dosage: ETOPOSIDE 106 MG + NS 500 ML
     Route: 041
     Dates: start: 20210701, end: 20210702
  14. CYTOSAR [Suspect]
     Active Substance: CYTARABINE
     Dosage: CYTOSAR 0.16 G + NS 100 ML
     Route: 041
     Dates: start: 20210701, end: 20210702
  15. 0.9% SODIUM CHLORIDE INJECTION [Suspect]
     Active Substance: SODIUM CHLORIDE
     Dosage: CYTOSAR 0.16 G + NS 100 ML
     Route: 041
     Dates: start: 20210701, end: 20210702
  16. 0.9% SODIUM CHLORIDE INJECTION [Suspect]
     Active Substance: SODIUM CHLORIDE
     Dosage: DOSE RE?INTRODUCED: CYTOSAR + NS
     Route: 041
     Dates: start: 202107
  17. VINCRISTINE SULFATE. [Suspect]
     Active Substance: VINCRISTINE SULFATE
     Indication: ANAPLASTIC LARGE-CELL LYMPHOMA
     Dosage: VINCRISTINE SULFATE 1.6MG + NS 30ML
     Route: 041
     Dates: start: 20210628, end: 20210628
  18. CYTOSAR [Suspect]
     Active Substance: CYTARABINE
     Dosage: DOSE RE?INTRODUCED: CYTOSAR + NS
     Route: 041
     Dates: start: 202107
  19. SODIUM CHLORIDE. [Suspect]
     Active Substance: SODIUM CHLORIDE
     Dosage: DOSE RE?INTRODUCED: VINCRISTINE SULFATE + NS
     Route: 041
  20. SODIUM CHLORIDE. [Suspect]
     Active Substance: SODIUM CHLORIDE
     Indication: MEDICATION DILUTION
     Dosage: VINCRISTINE SULFATE 1.6MG + NS 30ML
     Route: 041
     Dates: start: 20210628, end: 20210628
  21. 5% GLUCOSE  INJECTION [Suspect]
     Active Substance: DEXTROSE
     Indication: MEDICATION DILUTION
     Dosage: METHOTREXATE 5.31 G + 5% GS 250 ML
     Route: 041
     Dates: start: 20210628, end: 20210628
  22. CYTOSAR [Suspect]
     Active Substance: CYTARABINE
     Indication: ANAPLASTIC LARGE-CELL LYMPHOMA
     Route: 065

REACTIONS (1)
  - Pancytopenia [Recovering/Resolving]

NARRATIVE: CASE EVENT DATE: 20210705
